FAERS Safety Report 20556159 (Version 1)
Quarter: 2022Q1

REPORT INFORMATION
  Report Type: Other
  Country: EG (occurrence: EG)
  Receive Date: 20220304
  Receipt Date: 20220304
  Transmission Date: 20220423
  Serious: Yes (Other)
  Sender: FDA-Public Use
  Company Number: EG-002147023-NVSC2022EG044309

PATIENT
  Sex: Male

DRUGS (5)
  1. LUCENTIS [Suspect]
     Active Substance: RANIBIZUMAB
     Indication: Macular oedema
     Dosage: UNK
     Route: 065
     Dates: start: 202106
  2. GLIMAX (UKRAINE) [Concomitant]
     Indication: Product used for unknown indication
     Dosage: 3 MONTH AGO
     Route: 048
  3. METFORMIN [Concomitant]
     Active Substance: METFORMIN HYDROCHLORIDE
     Indication: Product used for unknown indication
     Dosage: 3 MONTH AGO
     Route: 048
  4. AMARYL [Concomitant]
     Active Substance: GLIMEPIRIDE
     Indication: Diabetes mellitus
     Dosage: 2 DOSAGE FORM, QD (STARTED 4 YEARS AGO AND STOPPED 3 MONTHS AGO)
     Route: 048
  5. JANUMET [Concomitant]
     Active Substance: METFORMIN HYDROCHLORIDE\SITAGLIPTIN PHOSPHATE
     Indication: Diabetes mellitus
     Dosage: 2 DOSAGE FORM, QD (RTED 9 YEARS AGO AND STOPPED 2 OR 3 MONTHS)
     Route: 048

REACTIONS (4)
  - Optical coherence tomography abnormal [Unknown]
  - Eye haemorrhage [Recovered/Resolved]
  - Eye haematoma [Recovered/Resolved]
  - Ocular hyperaemia [Recovered/Resolved]

NARRATIVE: CASE EVENT DATE: 20210902
